FAERS Safety Report 17165089 (Version 1)
Quarter: 2019Q4

REPORT INFORMATION
  Report Type: Spontaneous
  Country: US (occurrence: US)
  Receive Date: 20191217
  Receipt Date: 20191217
  Transmission Date: 20200122
  Serious: No
  Sender: FDA-Public Use
  Company Number: US-PERRIGO-19US010983

PATIENT
  Sex: Female

DRUGS (4)
  1. TIOCONAZOLE. [Suspect]
     Active Substance: TIOCONAZOLE
     Indication: VULVOVAGINAL PRURITUS
  2. TIOCONAZOLE. [Suspect]
     Active Substance: TIOCONAZOLE
     Indication: VULVOVAGINAL PAIN
  3. TIOCONAZOLE. [Suspect]
     Active Substance: TIOCONAZOLE
     Indication: VULVOVAGINAL SWELLING
  4. TIOCONAZOLE. [Suspect]
     Active Substance: TIOCONAZOLE
     Indication: VULVOVAGINAL MYCOTIC INFECTION
     Dosage: 300 MG, SINGLE
     Route: 067
     Dates: start: 20190817, end: 20190817

REACTIONS (3)
  - Condition aggravated [Recovering/Resolving]
  - Vulvovaginal discomfort [Unknown]
  - Underdose [Recovered/Resolved]

NARRATIVE: CASE EVENT DATE: 20190817
